FAERS Safety Report 24463880 (Version 1)
Quarter: 2024Q4

REPORT INFORMATION
  Report Type: Report from Study
  Country: US (occurrence: US)
  Receive Date: 20241018
  Receipt Date: 20241018
  Transmission Date: 20250114
  Serious: No
  Sender: ROCHE
  Company Number: US-ROCHE-3487210

PATIENT
  Age: 44 Year
  Sex: Female

DRUGS (2)
  1. XOLAIR [Suspect]
     Active Substance: OMALIZUMAB
     Indication: Chronic spontaneous urticaria
     Dosage: INYECTAR 300 MILI GRAMOS SUBCUTANEAMENTE CADA 4 SEMANA(S)
     Route: 058
  2. XOLAIR [Suspect]
     Active Substance: OMALIZUMAB

REACTIONS (3)
  - Influenza [Unknown]
  - Hypersensitivity [Unknown]
  - COVID-19 [Unknown]
